FAERS Safety Report 8256324-3 (Version None)
Quarter: 2012Q2

REPORT INFORMATION
  Report Type: 
  Country: None (occurrence: None)
  Receive Date: 20120403
  Receipt Date: 20120322
  Transmission Date: 20120825
  Serious: Yes (Hospitalization, Other)
  Sender: FDA-Public Use
  Company Number: IT-ELI_LILLY_AND_COMPANY-IT201201005709

PATIENT
  Sex: Female
  Weight: 53 kg

DRUGS (15)
  1. ZYPREXA [Concomitant]
     Indication: DEPRESSION
     Dosage: UNK
  2. PANTOPRAZOLE [Concomitant]
     Indication: GASTROOESOPHAGEAL REFLUX DISEASE
     Dosage: UNK
     Dates: start: 19940101
  3. CISPLATIN [Suspect]
     Indication: NON-SMALL CELL LUNG CANCER
     Dosage: 75 MG/M2, UNK
     Route: 042
     Dates: start: 20120110
  4. CIXUTUMUMAB [Suspect]
     Indication: NON-SMALL CELL LUNG CANCER
     Dosage: 20 MG/KG, UNK
     Route: 042
     Dates: start: 20120110
  5. PEMETREXED [Suspect]
     Indication: NON-SMALL CELL LUNG CANCER
     Dosage: 500 MG/M2, UNK
     Route: 042
     Dates: start: 20120110
  6. OXYCONTIN [Concomitant]
     Indication: NON-CARDIAC CHEST PAIN
     Dosage: UNK
     Dates: start: 20111207
  7. EFFEXOR [Concomitant]
     Indication: DEPRESSION
     Dosage: UNK
  8. MOTILIUM [Concomitant]
     Indication: GASTROOESOPHAGEAL REFLUX DISEASE
     Dosage: UNK
     Dates: start: 19940101
  9. DENIBAN [Concomitant]
     Indication: DEPRESSION
     Dosage: UNK
  10. SUCRALFIN [Concomitant]
     Indication: GASTROOESOPHAGEAL REFLUX DISEASE
     Dosage: UNK
     Dates: start: 19940101
  11. ACETAMINOPHEN [Concomitant]
     Indication: NON-CARDIAC CHEST PAIN
     Dosage: UNK
     Dates: start: 20111207
  12. FOLIC ACID [Concomitant]
     Indication: PROPHYLAXIS
     Dosage: UNK
     Dates: start: 20111229
  13. VITAMIN B-12 [Concomitant]
     Indication: PROPHYLAXIS
     Dosage: UNK
     Dates: start: 20111229
  14. DEXAMETHASONE [Concomitant]
     Indication: PROPHYLAXIS
     Dosage: UNK
     Dates: start: 20120109
  15. METOCLOPRAMIDE HYDROCHLORIDE [Concomitant]
     Indication: NAUSEA
     Dosage: UNK
     Dates: start: 20120114

REACTIONS (4)
  - DECREASED APPETITE [None]
  - NAUSEA [None]
  - VOMITING [None]
  - FATIGUE [None]
